FAERS Safety Report 18293655 (Version 1)
Quarter: 2020Q3

REPORT INFORMATION
  Report Type: Other
  Country: US (occurrence: US)
  Receive Date: 20200921
  Receipt Date: 20200921
  Transmission Date: 20201103
  Serious: No
  Sender: FDA-Public Use
  Company Number: US-ACORDA-ACO_165882_2020

PATIENT
  Sex: Male

DRUGS (2)
  1. INBRIJA [Suspect]
     Active Substance: LEVODOPA
     Indication: PARKINSON^S DISEASE
     Dosage: 84 MILLIGRAM, PRN. NOT TO EXCEED 5 DOSES PER DAY
  2. INBRIJA [Suspect]
     Active Substance: LEVODOPA
     Indication: ON AND OFF PHENOMENON

REACTIONS (9)
  - Fall [Unknown]
  - Device occlusion [Unknown]
  - Parkinson^s disease [Unknown]
  - Urinary tract infection [Unknown]
  - Hypoacusis [Unknown]
  - Device issue [Unknown]
  - Loss of personal independence in daily activities [Unknown]
  - Device use issue [Unknown]
  - Product residue present [Unknown]
